FAERS Safety Report 11986340 (Version 1)
Quarter: 2016Q1

REPORT INFORMATION
  Report Type: Spontaneous
  Country: US (occurrence: None)
  Receive Date: 20160201
  Receipt Date: 20160201
  Transmission Date: 20160526
  Serious: Yes (Life-Threatening, Hospitalization, Other)
  Sender: FDA-Public Use
  Company Number: None

PATIENT
  Age: 52 Year
  Sex: Female
  Weight: 83.92 kg

DRUGS (4)
  1. CORT ENEMA [Concomitant]
  2. ENTYVIO [Suspect]
     Active Substance: VEDOLIZUMAB
  3. DONNATOL [Concomitant]
  4. MEDICINAL MARIJUANA [Concomitant]

REACTIONS (5)
  - Headache [None]
  - White blood cell count increased [None]
  - Dyspnoea [None]
  - Pyrexia [None]
  - Malaise [None]

NARRATIVE: CASE EVENT DATE: 20160126
